FAERS Safety Report 23723250 (Version 1)
Quarter: 2024Q2

REPORT INFORMATION
  Report Type: Spontaneous
  Country: CA (occurrence: CA)
  Receive Date: 20240409
  Receipt Date: 20240409
  Transmission Date: 20240716
  Serious: Yes (Hospitalization)
  Sender: FDA-Public Use
  Company Number: CA-FreseniusKabi-FK202405715

PATIENT
  Age: 78 Year
  Sex: Male
  Weight: 92 kg

DRUGS (1)
  1. AMIODARONE [Suspect]
     Active Substance: AMIODARONE
     Indication: Arrhythmic storm
     Dosage: FORM OF ADMIN: NOT SPECIFIED?ROUTE OF ADMIN: INTRAVENOUS (NOT OTHERWISE SPECIFIED)

REACTIONS (1)
  - Hepatitis [Unknown]
